FAERS Safety Report 8771516 (Version 3)
Quarter: 2012Q4

REPORT INFORMATION
  Report Type: 
  Country: CA (occurrence: CA)
  Receive Date: 20120905
  Receipt Date: 20121002
  Transmission Date: 20130627
  Serious: Yes (Other)
  Sender: FDA-Public Use
  Company Number: CA-WATSON-2012-14944

PATIENT

DRUGS (10)
  1. GELNIQUE-CANADA (WATSON LABORATORIES) [Suspect]
     Indication: BLADDER DISORDER
     Dosage: 10% in the morning
     Route: 061
     Dates: start: 20120731
  2. GELNIQUE-CANADA (WATSON LABORATORIES) [Suspect]
     Indication: HYPERTONIC BLADDER
     Dosage: 10% in the morning
     Route: 061
     Dates: start: 20120817
  3. VENLAFAXINE [Concomitant]
     Indication: DEPRESSION
  4. ALFACALCIDOL [Concomitant]
     Indication: SUPPLEMENTATION THERAPY
  5. APO AMLODIPINE [Concomitant]
     Indication: BLOOD PRESSURE INCREASED
  6. GLICLAZIDE [Concomitant]
     Indication: DIABETES MELLITUS
  7. ROSUVASTATIN [Concomitant]
     Indication: BLOOD CHOLESTEROL INCREASED
  8. TECTA [Concomitant]
     Indication: PRODUCT USED FOR UNKNOWN INDICATION
  9. CLOPIDOGREL MYLAN [Concomitant]
     Indication: PRODUCT USED FOR UNKNOWN INDICATION
  10. APO-CIPROFLOX [Concomitant]
     Indication: PRODUCT USED FOR UNKNOWN INDICATION

REACTIONS (4)
  - Chest pain [Recovered/Resolved]
  - Angina pectoris [Unknown]
  - Drug effect incomplete [Unknown]
  - Hypoaesthesia [Recovered/Resolved]
